FAERS Safety Report 18796763 (Version 3)
Quarter: 2023Q2

REPORT INFORMATION
  Report Type: Spontaneous
  Country: US (occurrence: US)
  Receive Date: 20210128
  Receipt Date: 20230615
  Transmission Date: 20230721
  Serious: Yes (Other)
  Sender: FDA-Public Use
  Company Number: US-GILEAD-2021-0513451

PATIENT
  Sex: Male
  Weight: 70.295 kg

DRUGS (31)
  1. TRUVADA [Suspect]
     Active Substance: EMTRICITABINE\TENOFOVIR DISOPROXIL FUMARATE
     Indication: HIV infection
     Dosage: UNK
     Route: 048
     Dates: start: 2005
  2. TRUVADA [Suspect]
     Active Substance: EMTRICITABINE\TENOFOVIR DISOPROXIL FUMARATE
     Dosage: UNK
     Route: 048
     Dates: start: 2004, end: 2010
  3. TRUVADA [Suspect]
     Active Substance: EMTRICITABINE\TENOFOVIR DISOPROXIL FUMARATE
     Dosage: UNK
     Route: 048
     Dates: start: 2004, end: 201111
  4. VIREAD [Suspect]
     Active Substance: TENOFOVIR DISOPROXIL FUMARATE
     Indication: HIV infection
     Dosage: UNK
     Route: 048
     Dates: start: 2005
  5. VIREAD [Suspect]
     Active Substance: TENOFOVIR DISOPROXIL FUMARATE
     Dosage: UNK
     Route: 048
     Dates: start: 2001, end: 2010
  6. VIREAD [Suspect]
     Active Substance: TENOFOVIR DISOPROXIL FUMARATE
     Dosage: UNK
     Route: 048
     Dates: start: 201702, end: 201706
  7. CRIXIVAN [Concomitant]
     Active Substance: INDINAVIR SULFATE
  8. DESCOVY [Concomitant]
     Active Substance: EMTRICITABINE\TENOFOVIR ALAFENAMIDE FUMARATE
  9. EPIVIR [Concomitant]
     Active Substance: LAMIVUDINE
  10. FUZEON [Concomitant]
     Active Substance: ENFUVIRTIDE
  11. INTELENCE [Concomitant]
     Active Substance: ETRAVIRINE
  12. ISENTRESS [Concomitant]
     Active Substance: RALTEGRAVIR POTASSIUM
  13. KALETRA [Concomitant]
     Active Substance: LOPINAVIR\RITONAVIR
  14. NORVIR [Concomitant]
     Active Substance: RITONAVIR
  15. PREZISTA [Concomitant]
     Active Substance: DARUNAVIR ETHANOLATE
  16. RETROVIR [Concomitant]
     Active Substance: ZIDOVUDINE
  17. SUSTIVA [Concomitant]
     Active Substance: EFAVIRENZ
  18. TIVICAY [Concomitant]
     Active Substance: DOLUTEGRAVIR SODIUM
  19. VIDEX [Concomitant]
     Active Substance: DIDANOSINE
  20. VIRACEPT [Concomitant]
     Active Substance: NELFINAVIR MESYLATE
  21. ZIAGEN [Concomitant]
     Active Substance: ABACAVIR SULFATE
  22. ZERIT [Concomitant]
     Active Substance: STAVUDINE
  23. AMLODIPINE [Concomitant]
     Active Substance: AMLODIPINE BESYLATE
  24. ENTECAVIR [Concomitant]
     Active Substance: ENTECAVIR
  25. GABAPENTIN [Concomitant]
     Active Substance: GABAPENTIN
  26. ADEFOVIR [Concomitant]
     Active Substance: ADEFOVIR
  27. CRESTOR [Concomitant]
     Active Substance: ROSUVASTATIN CALCIUM
  28. CALCIUM\VITAMIN D [Concomitant]
     Active Substance: CALCIUM\VITAMIN D
  29. CHLORTHALIDONE [Concomitant]
     Active Substance: CHLORTHALIDONE
  30. WELLBUTRIN [Concomitant]
     Active Substance: BUPROPION HYDROCHLORIDE
  31. METHOCARBAMOL [Concomitant]
     Active Substance: METHOCARBAMOL

REACTIONS (9)
  - Chronic kidney disease [Not Recovered/Not Resolved]
  - Osteoporosis [Unknown]
  - Renal injury [Unknown]
  - Blood creatinine increased [Not Recovered/Not Resolved]
  - Pain [Not Recovered/Not Resolved]
  - Emotional distress [Not Recovered/Not Resolved]
  - Anxiety [Not Recovered/Not Resolved]
  - Anhedonia [Not Recovered/Not Resolved]
  - Vitamin D deficiency [Not Recovered/Not Resolved]

NARRATIVE: CASE EVENT DATE: 20070101
